FAERS Safety Report 14337768 (Version 1)
Quarter: 2017Q4

REPORT INFORMATION
  Report Type: Spontaneous
  Country: US (occurrence: US)
  Receive Date: 20171228
  Receipt Date: 20171228
  Transmission Date: 20180321
  Serious: No
  Sender: FDA-Public Use
  Company Number: None

PATIENT
  Age: 55 Year
  Sex: Male

DRUGS (1)
  1. MYCOPHENOLAT MOF CAP 250MG [Suspect]
     Active Substance: MYCOPHENOLATE MOFETIL

REACTIONS (5)
  - Eye swelling [None]
  - Lacrimation increased [None]
  - Headache [None]
  - Eye pruritus [None]
  - Vision blurred [None]

NARRATIVE: CASE EVENT DATE: 20171228
